FAERS Safety Report 22534423 (Version 1)
Quarter: 2023Q2

REPORT INFORMATION
  Report Type: Spontaneous
  Country: CN (occurrence: CN)
  Receive Date: 20230608
  Receipt Date: 20230608
  Transmission Date: 20230722
  Serious: Yes (Hospitalization, Other)
  Sender: FDA-Public Use
  Company Number: None

PATIENT
  Age: 64 Year
  Sex: Female
  Weight: 70.6 kg

DRUGS (6)
  1. CYCLOPHOSPHAMIDE [Suspect]
     Active Substance: CYCLOPHOSPHAMIDE
     Indication: Breast cancer female
     Dosage: 800 MG, QD, DILUTED WITH 500 ML OF 0.9% SODIUM CHLORIDE
     Route: 041
     Dates: start: 20230511, end: 20230511
  2. SODIUM CHLORIDE [Suspect]
     Active Substance: SODIUM CHLORIDE
     Indication: Medication dilution
     Dosage: 500 ML, QD, STRENGTH: 0.9%, DOSAGE FORM: INJECTION, USED TO DILUTE 800 MG OF CYCLOPHOSPHAMIDE
     Route: 042
     Dates: start: 20230511, end: 20230511
  3. DEXTROSE [Suspect]
     Active Substance: DEXTROSE\DEXTROSE MONOHYDRATE
     Indication: Medication dilution
     Dosage: 500 ML, QD, DOSAGE FORM: INJECTION, USED TO DILUTE 120 MG OF DOCETAXEL
     Route: 041
     Dates: start: 20230511, end: 20230511
  4. DEXTROSE [Suspect]
     Active Substance: DEXTROSE\DEXTROSE MONOHYDRATE
     Dosage: 500 ML, QD, DOSAGE FORM: INJECTION, USED TO DILUTE 50 MG OF DOXORUBICIN HYDROCHLORIDE LIPOSOME
     Route: 041
     Dates: start: 20230511, end: 20230511
  5. DOCETAXEL [Suspect]
     Active Substance: DOCETAXEL
     Indication: Breast cancer female
     Dosage: 120 MG, QD, DILUTED WITH 500 ML OF GLUCOSE
     Route: 041
     Dates: start: 20230511, end: 20230511
  6. DOXORUBICIN HYDROCHLORIDE [Suspect]
     Active Substance: DOXORUBICIN HYDROCHLORIDE
     Indication: Breast cancer female
     Dosage: 50 MG, QD, DILUTED WITH 500 ML OF GLUCOSE
     Route: 041
     Dates: start: 20230511, end: 20230511

REACTIONS (1)
  - Myelosuppression [Recovering/Resolving]

NARRATIVE: CASE EVENT DATE: 20230518
